FAERS Safety Report 10278040 (Version 1)
Quarter: 2014Q3

REPORT INFORMATION
  Report Type: Spontaneous
  Country: US (occurrence: US)
  Receive Date: 20140704
  Receipt Date: 20140704
  Transmission Date: 20150326
  Serious: No
  Sender: FDA-Public Use
  Company Number: US-009507513-1406USA010062

PATIENT
  Sex: Female

DRUGS (1)
  1. NEXPLANON [Suspect]
     Active Substance: ETONOGESTREL
     Indication: CONTRACEPTION
     Dosage: 68 MG, / ONE ROD INSERTET EVERY THREE YEARS
     Route: 059

REACTIONS (5)
  - Implant site pain [Unknown]
  - Device dislocation [Unknown]
  - Skin disorder [Unknown]
  - Paraesthesia [Unknown]
  - Implant site swelling [Unknown]
